FAERS Safety Report 24306986 (Version 1)
Quarter: 2024Q3

REPORT INFORMATION
  Report Type: Spontaneous
  Country: US (occurrence: US)
  Receive Date: 20240911
  Receipt Date: 20240911
  Transmission Date: 20241017
  Serious: No
  Sender: ABBVIE
  Company Number: US-ABBVIE-5910170

PATIENT
  Age: 43 Year

DRUGS (1)
  1. RINVOQ [Suspect]
     Active Substance: UPADACITINIB
     Indication: Ankylosing spondylitis
     Route: 048
     Dates: start: 2024

REACTIONS (2)
  - Tongue ulceration [Unknown]
  - Stomatitis [Unknown]

NARRATIVE: CASE EVENT DATE: 20240101
